FAERS Safety Report 10935394 (Version 2)
Quarter: 2015Q3

REPORT INFORMATION
  Report Type: Spontaneous
  Country: CA (occurrence: CA)
  Receive Date: 20150320
  Receipt Date: 20150908
  Transmission Date: 20151125
  Serious: Yes (Death, Other)
  Sender: FDA-Public Use
  Company Number: CA-GLAXOSMITHKLINE INC.-CA2015GSK035247

PATIENT
  Age: 82 Year
  Sex: Female
  Weight: 163 kg

DRUGS (5)
  1. DABRAFENIB [Suspect]
     Active Substance: DABRAFENIB
     Indication: MALIGNANT MELANOMA
     Dosage: 150 MG, BID
     Route: 048
     Dates: start: 20131126
  2. PEMBROLIZUMAB. [Concomitant]
     Active Substance: PEMBROLIZUMAB
     Dosage: UNK
     Dates: start: 20130701, end: 20131031
  3. VEMURAFENIB [Suspect]
     Active Substance: VEMURAFENIB
  4. DABRAFENIB [Suspect]
     Active Substance: DABRAFENIB
     Dosage: 70 MG, BID
     Dates: start: 20140415, end: 20140505
  5. IVIG [Concomitant]
     Active Substance: HUMAN IMMUNOGLOBULIN G
     Dosage: 2 G, UNK
     Route: 042

REACTIONS (5)
  - Guillain-Barre syndrome [Recovered/Resolved with Sequelae]
  - Motor dysfunction [Unknown]
  - Demyelinating polyneuropathy [Unknown]
  - Skin toxicity [Unknown]
  - Malignant melanoma [Fatal]

NARRATIVE: CASE EVENT DATE: 20140101
